FAERS Safety Report 8078302-X (Version None)
Quarter: 2012Q1

REPORT INFORMATION
  Report Type: 
  Country: None (occurrence: None)
  Receive Date: 20120123
  Receipt Date: 20120109
  Transmission Date: 20120608
  Serious: Yes (Hospitalization)
  Sender: FDA-Public Use
  Company Number: 2012SP003323

PATIENT
  Age: 54 Year
  Sex: Female
  Weight: 77.5651 kg

DRUGS (16)
  1. CRESTOR [Suspect]
     Dosage: 20 MG;QD
  2. ALVESCO [Suspect]
     Dosage: 400 MCG
  3. ASPIRIN [Suspect]
     Dosage: QD
  4. MAVIK [Suspect]
     Indication: PRODUCT USED FOR UNKNOWN INDICATION
     Dosage: 2 MG;QD;SC
     Route: 058
  5. PANTOPRAZOLE [Suspect]
     Indication: PRODUCT USED FOR UNKNOWN INDICATION
     Dosage: 40 MG;QD
  6. DETROL LA [Suspect]
     Dosage: 4 MG;QD
  7. MACROBID [Suspect]
     Indication: PRODUCT USED FOR UNKNOWN INDICATION
     Dosage: 100 MG;QD
  8. PLAVIX [Suspect]
     Indication: PRODUCT USED FOR UNKNOWN INDICATION
     Dosage: 75 MG;QD
  9. EZETIMIBE [Suspect]
     Indication: PRODUCT USED FOR UNKNOWN INDICATION
     Dosage: 10 MG;QD
  10. STELARA [Suspect]
     Indication: PRODUCT USED FOR UNKNOWN INDICATION
     Dosage: SC
     Route: 058
  11. DESLORATADINE [Suspect]
     Dosage: 5 MG;QD
  12. SUCRALFATE [Suspect]
     Indication: PRODUCT USED FOR UNKNOWN INDICATION
     Dosage: 1000 MG;BID
  13. DOMPERIDONE (DOMPERIDONE) [Suspect]
     Dosage: 10 MG;BID
  14. IMIPRAMINE [Suspect]
     Indication: PRODUCT USED FOR UNKNOWN INDICATION
     Dosage: 25 MG;BID
  15. SINGULAIR [Concomitant]
  16. ATENOLOL [Suspect]
     Dosage: 50 MG;QD

REACTIONS (3)
  - HALLUCINATION, AUDITORY [None]
  - PARANOIA [None]
  - PSYCHOTIC DISORDER [None]
